FAERS Safety Report 9742098 (Version 3)
Quarter: 2014Q2

REPORT INFORMATION
  Report Type: Spontaneous
  Country: US (occurrence: US)
  Receive Date: 20131210
  Receipt Date: 20140422
  Transmission Date: 20141212
  Serious: Yes (Hospitalization)
  Sender: FDA-Public Use
  Company Number: US-BAYER-2013-147988

PATIENT
  Age: 29 Year
  Sex: Female
  Weight: 59.86 kg

DRUGS (2)
  1. MIRENA [Suspect]
     Indication: CONTRACEPTION
     Dosage: 20 MCG/24HR, CONT
     Route: 015
     Dates: start: 20100202, end: 20100809
  2. IBUPROFEN [Concomitant]
     Dosage: 800 MG, UNK

REACTIONS (7)
  - Uterine perforation [None]
  - Menstruation irregular [None]
  - Asthenia [None]
  - Device dislocation [None]
  - Injury [None]
  - Emotional distress [None]
  - Pain [None]
